FAERS Safety Report 4969439-X (Version None)
Quarter: 2006Q2

REPORT INFORMATION
  Report Type: 
  Country: None (occurrence: None)
  Receive Date: 20060406
  Receipt Date: 20060329
  Transmission Date: 20061013
  Serious: Yes (Disabling, Other)
  Sender: FDA-Public Use
  Company Number: 200610702BWH

PATIENT
  Age: 51 Year
  Sex: Male

DRUGS (7)
  1. LEVITRA [Suspect]
     Indication: ERECTILE DYSFUNCTION
     Dosage: 20 MG, TOTAL DAILY, ORAL
     Route: 048
     Dates: start: 20050701
  2. FENTANYL [Concomitant]
  3. PERCOCET [Concomitant]
  4. KLONOPIN [Concomitant]
  5. PHENERGAN HCL [Concomitant]
  6. PRILOSEC [Concomitant]
  7. ENSURE [Concomitant]

REACTIONS (7)
  - BLINDNESS TRANSIENT [None]
  - DIPLOPIA [None]
  - EYE PAIN [None]
  - HEADACHE [None]
  - OCULAR VASCULAR DISORDER [None]
  - OPTIC NERVE DISORDER [None]
  - VISION BLURRED [None]
